APPROVED DRUG PRODUCT: DESOXIMETASONE
Active Ingredient: DESOXIMETASONE
Strength: 0.25%
Dosage Form/Route: SPRAY;TOPICAL
Application: A208124 | Product #001 | TE Code: AT
Applicant: LUPIN INC
Approved: Mar 16, 2018 | RLD: No | RS: No | Type: RX